FAERS Safety Report 4845533-9 (Version None)
Quarter: 2005Q4

REPORT INFORMATION
  Report Type: 
  Country: None (occurrence: None)
  Receive Date: 20051201
  Receipt Date: 20051116
  Transmission Date: 20060501
  Serious: Yes (Hospitalization, Other)
  Sender: FDA-Public Use
  Company Number: DSA_27403_2005

PATIENT
  Age: 63 Year
  Sex: Female
  Weight: 47.6 kg

DRUGS (8)
  1. ATIVAN [Suspect]
     Indication: ANXIETY
     Dosage: DF PRN PO
     Route: 048
     Dates: start: 20050701
  2. ATIVAN [Suspect]
     Indication: SOMNOLENCE
     Dosage: DF PRN PO
     Route: 048
     Dates: start: 20050701
  3. ATIVAN [Suspect]
  4. VENTAVIS [Suspect]
     Indication: PULMONARY HYPERTENSION
     Dosage: DF IH
     Route: 055
     Dates: start: 20050714, end: 20050721
  5. VENTAVIS [Suspect]
     Indication: PULMONARY HYPERTENSION
     Dosage: 2.5 MG IH
     Route: 055
     Dates: start: 20050721, end: 20050725
  6. VENTAVIS [Suspect]
  7. NEURONTIN [Suspect]
     Indication: HERPES ZOSTER
     Dosage: 100 MG BID PO
     Route: 048
     Dates: start: 20050728
  8. CIPRO [Concomitant]

REACTIONS (8)
  - ANAEMIA [None]
  - BACK PAIN [None]
  - HALLUCINATION [None]
  - HERPES ZOSTER [None]
  - INFREQUENT BOWEL MOVEMENTS [None]
  - MUSCLE SPASMS [None]
  - PERSONALITY CHANGE [None]
  - VOMITING [None]
